FAERS Safety Report 8676865 (Version 4)
Quarter: 2012Q4

REPORT INFORMATION
  Report Type: 
  Country: US (occurrence: US)
  Receive Date: 20120723
  Receipt Date: 20121102
  Transmission Date: 20130627
  Serious: Yes (Other)
  Sender: FDA-Public Use
  Company Number: US-PFIZER INC-2012172337

PATIENT
  Age: 85 Year
  Sex: Female

DRUGS (1)
  1. INLYTA [Suspect]
     Indication: CARCINOMA KIDNEY
     Dosage: 5 mg, 2x/day (By mouth take 1 tablet twice a day)
     Route: 048
     Dates: start: 20120312

REACTIONS (4)
  - Retinal vascular disorder [Unknown]
  - Disease progression [Unknown]
  - Renal cancer [Unknown]
  - Feeling abnormal [Unknown]
